FAERS Safety Report 10706952 (Version 1)
Quarter: 2015Q1

REPORT INFORMATION
  Report Type: Spontaneous
  Country: US (occurrence: US)
  Receive Date: 20150113
  Receipt Date: 20150113
  Transmission Date: 20150721
  Serious: No
  Sender: FDA-Public Use
  Company Number: US-TEVA-522319USA

PATIENT
  Sex: Female

DRUGS (1)
  1. LEVALBUTEROL [Suspect]
     Active Substance: LEVALBUTEROL
     Dosage: 2-3/DAY
     Route: 065

REACTIONS (4)
  - Tension [Unknown]
  - Heart rate increased [Unknown]
  - Insomnia [Unknown]
  - Anxiety [Unknown]
